FAERS Safety Report 4302843-1 (Version None)
Quarter: 2004Q1

REPORT INFORMATION
  Report Type: 
  Country: None (occurrence: None)
  Receive Date: 20040223
  Receipt Date: 20040223
  Transmission Date: 20041129
  Serious: Yes (Life-Threatening, Hospitalization)
  Sender: FDA-Public Use
  Company Number: None

PATIENT
  Age: 80 Year
  Sex: Female
  Weight: 77.3837 kg

DRUGS (3)
  1. ASPIRIN [Suspect]
     Indication: ANTIPLATELET THERAPY
     Dosage: 81 MG DAILY ORAL
     Route: 048
  2. IBUPROFEN [Suspect]
     Indication: INFLAMMATION
     Dosage: 200 MG AS NEEDED ORAL
     Route: 048
  3. IBUPROFEN [Suspect]
     Indication: PAIN
     Dosage: 200 MG AS NEEDED ORAL
     Route: 048

REACTIONS (6)
  - ANAEMIA [None]
  - DIVERTICULITIS [None]
  - GASTROINTESTINAL ULCER [None]
  - POLYP [None]
  - RECTAL HAEMORRHAGE [None]
  - ULCER [None]
